FAERS Safety Report 7710357-1 (Version None)
Quarter: 2011Q3

REPORT INFORMATION
  Report Type: 
  Country: None (occurrence: None)
  Receive Date: 20110825
  Receipt Date: 20110718
  Transmission Date: 20111222
  Serious: No
  Sender: FDA-Public Use
  Company Number: US-MYLANLABS-2011S1014876

PATIENT
  Age: 53 Year
  Sex: Female

DRUGS (1)
  1. LANSOPRAZOLE [Suspect]
     Indication: GASTROOESOPHAGEAL REFLUX DISEASE
     Route: 048
     Dates: start: 20110705, end: 20110709

REACTIONS (3)
  - ABDOMINAL PAIN [None]
  - ABDOMINAL DISTENSION [None]
  - NAUSEA [None]
